FAERS Safety Report 23981618 (Version 1)
Quarter: 2024Q2

REPORT INFORMATION
  Report Type: Spontaneous
  Country: US (occurrence: None)
  Receive Date: 20240615
  Receipt Date: 20240615
  Transmission Date: 20240716
  Serious: Yes (Other)
  Sender: FDA-Public Use
  Company Number: None

PATIENT
  Sex: 0
  Weight: 67.5 kg

DRUGS (4)
  1. HERBALS\MUSHROOMS UNSPECIFIED [Suspect]
     Active Substance: HERBALS\MUSHROOMS UNSPECIFIED
     Indication: Substance use
     Dosage: OTHER QUANTITY : 6 PIECE?FREQUENCY : AS NEEDED?
     Route: 048
  2. PAROXETINE [Concomitant]
     Active Substance: PAROXETINE
  3. FINASTERIDE [Concomitant]
     Active Substance: FINASTERIDE
  4. TESTOSTERONE [Concomitant]
     Active Substance: TESTOSTERONE

REACTIONS (5)
  - Loss of consciousness [None]
  - Vomiting [None]
  - Tongue biting [None]
  - Seizure [None]
  - Haemorrhage [None]

NARRATIVE: CASE EVENT DATE: 20240615
